FAERS Safety Report 18266562 (Version 1)
Quarter: 2020Q3

REPORT INFORMATION
  Report Type: Report from Study
  Country: ES (occurrence: ES)
  Receive Date: 20200915
  Receipt Date: 20200915
  Transmission Date: 20201103
  Serious: Yes (Hospitalization)
  Sender: FDA-Public Use
  Company Number: ES-TEVA-2020-ES-1826654

PATIENT
  Age: 62 Year
  Sex: Female
  Weight: 79 kg

DRUGS (1)
  1. METOTREXATO (418A) [Suspect]
     Active Substance: METHOTREXATE
     Indication: PSORIASIS
     Dosage: 15MG / WEEK
     Route: 058
     Dates: start: 20090604, end: 20200205

REACTIONS (1)
  - Postoperative wound infection [Recovered/Resolved]

NARRATIVE: CASE EVENT DATE: 20190225
